FAERS Safety Report 17510658 (Version 2)
Quarter: 2020Q1

REPORT INFORMATION
  Report Type: Report from Study
  Country: US (occurrence: US)
  Receive Date: 20200306
  Receipt Date: 20200325
  Transmission Date: 20200409
  Serious: Yes (Hospitalization, Other)
  Sender: FDA-Public Use
  Company Number: US-GILEAD-2020-0453884

PATIENT
  Age: 44 Year
  Sex: Female

DRUGS (4)
  1. DILTIAZEM. [Concomitant]
     Active Substance: DILTIAZEM
  2. AMBRISENTAN [Suspect]
     Active Substance: AMBRISENTAN
     Indication: PRODUCT USED FOR UNKNOWN INDICATION
     Dosage: 5 MG, QD
     Route: 048
     Dates: start: 20151217
  3. ADCIRCA [Concomitant]
     Active Substance: TADALAFIL
  4. TADALAFIL. [Concomitant]
     Active Substance: TADALAFIL

REACTIONS (9)
  - Systemic lupus erythematosus [Unknown]
  - Pneumonia [Unknown]
  - Chest pain [Unknown]
  - Decreased appetite [Unknown]
  - Syncope [Unknown]
  - Fatigue [Unknown]
  - Urinary tract infection [Unknown]
  - Respiratory tract infection [Unknown]
  - Chronic sinusitis [Unknown]

NARRATIVE: CASE EVENT DATE: 20200214
